FAERS Safety Report 21462850 (Version 2)
Quarter: 2023Q2

REPORT INFORMATION
  Report Type: Report from Study
  Country: US (occurrence: US)
  Receive Date: 20221017
  Receipt Date: 20230529
  Transmission Date: 20230721
  Serious: Yes (Other)
  Sender: FDA-Public Use
  Company Number: US-ABBVIE-22K-163-4480561-00

PATIENT
  Age: 72 Year
  Sex: Female

DRUGS (5)
  1. HUMIRA [Suspect]
     Active Substance: ADALIMUMAB
     Indication: Rheumatoid arthritis
     Dosage: FORM STRENGTH: 40 MG
     Route: 058
  2. HUMIRA [Suspect]
     Active Substance: ADALIMUMAB
     Indication: Rheumatoid arthritis
     Dosage: CITRATE FREE?STRENGTH 40 MILLIGRAM
     Route: 058
  3. PFIZER-BIONTECH COVID-19 VACCINE [Concomitant]
     Active Substance: TOZINAMERAN
     Indication: COVID-19 immunisation
     Dosage: TIME INTERVAL: 1 TOTAL: 1 ST DOSE
     Route: 030
     Dates: start: 20210121, end: 20210121
  4. PFIZER-BIONTECH COVID-19 VACCINE [Concomitant]
     Active Substance: TOZINAMERAN
     Indication: COVID-19 immunisation
     Dosage: TIME INTERVAL: 1 TOTAL: 2 ND DOSE
     Route: 030
     Dates: start: 20210211, end: 20210211
  5. PFIZER-BIONTECH COVID-19 VACCINE [Concomitant]
     Active Substance: TOZINAMERAN
     Indication: COVID-19 immunisation
     Dosage: TIME INTERVAL: TOTAL: 3RD DOSE
     Route: 030
     Dates: start: 20211025, end: 20211025

REACTIONS (10)
  - Myocardial infarction [Recovered/Resolved]
  - Fall [Recovering/Resolving]
  - Upper limb fracture [Unknown]
  - Wrist fracture [Recovering/Resolving]
  - Peripheral swelling [Unknown]
  - Glaucoma [Unknown]
  - Cataract [Recovered/Resolved]
  - Arthralgia [Unknown]
  - SARS-CoV-2 test positive [Recovered/Resolved]
  - Suspected COVID-19 [Recovered/Resolved]

NARRATIVE: CASE EVENT DATE: 20201201
